FAERS Safety Report 24590885 (Version 2)
Quarter: 2024Q4

REPORT INFORMATION
  Report Type: Spontaneous
  Country: US (occurrence: US)
  Receive Date: 20241107
  Receipt Date: 20241210
  Transmission Date: 20250115
  Serious: No
  Sender: SUNOVION
  Company Number: US-SUMITOMO PHARMA SWITZERLAND GMBH-2024SPA004435

PATIENT

DRUGS (3)
  1. GEMTESA [Suspect]
     Active Substance: VIBEGRON
     Indication: Bladder disorder
     Dosage: 75 MG
     Route: 048
     Dates: start: 20241021
  2. GEMTESA [Suspect]
     Active Substance: VIBEGRON
     Indication: Nerve injury
  3. VIBEGRON [Suspect]
     Active Substance: VIBEGRON
     Dosage: LAST YEAR
     Route: 065

REACTIONS (2)
  - Diarrhoea [Unknown]
  - Headache [Unknown]
